FAERS Safety Report 24088396 (Version 3)
Quarter: 2025Q3

REPORT INFORMATION
  Report Type: Other
  Country: EU (occurrence: EU)
  Receive Date: 20240715
  Receipt Date: 20250708
  Transmission Date: 20251021
  Serious: Yes (Other)
  Sender: GLENMARK
  Company Number: None

PATIENT
  Age: 43 Year
  Sex: Male
  Weight: 63 kg

DRUGS (5)
  1. RYALTRIS [Suspect]
     Active Substance: MOMETASONE FUROATE MONOHYDRATE\OLOPATADINE HYDROCHLORIDE
     Indication: Upper-airway cough syndrome
     Dosage: 2 DOSAGE FORM, BID (PER 12 HOURS) (2 SQUIRTS INTO EACH NOSTRIL TWICE A DAY)
     Route: 045
     Dates: start: 20240520
  2. RYALTRIS [Suspect]
     Active Substance: MOMETASONE FUROATE MONOHYDRATE\OLOPATADINE HYDROCHLORIDE
     Dosage: 2 DOSAGE FORM, BID (PER 12 HOURS) (2 SQUIRTS INTO EACH NOSTRIL TWICE A DAY) (RESTARTED)
     Route: 045
  3. BETAHISTINE [Concomitant]
     Active Substance: BETAHISTINE
     Indication: Oedema
     Dosage: 24 MILLIGRAM, BID (PER 12 HOURS) (~1TBL 1-0-1)
     Route: 048
     Dates: start: 20240520
  4. GINKGO [Concomitant]
     Active Substance: GINKGO
     Indication: Oedema
     Route: 048
     Dates: start: 20240520
  5. EBASTINE [Concomitant]
     Active Substance: EBASTINE
     Indication: Seasonal allergy
     Route: 065

REACTIONS (1)
  - Tinnitus [Unknown]

NARRATIVE: CASE EVENT DATE: 20240520
